FAERS Safety Report 13641479 (Version 1)
Quarter: 2017Q2

REPORT INFORMATION
  Report Type: Spontaneous
  Country: US (occurrence: US)
  Receive Date: 20170610
  Receipt Date: 20170610
  Transmission Date: 20170830
  Serious: Yes (Other)
  Sender: FDA-Public Use
  Company Number: None

PATIENT
  Age: 67 Year
  Sex: Female
  Weight: 85.5 kg

DRUGS (10)
  1. NORVASC [Concomitant]
     Active Substance: AMLODIPINE BESYLATE
  2. TRAZODONE [Concomitant]
     Active Substance: TRAZODONE HYDROCHLORIDE
  3. CARBOXYMETHYLCELLULOSE EYE DROPS [Concomitant]
  4. TRAVATAN EYE DROPS [Concomitant]
  5. CALCIUM WITH VITAMIN D [Concomitant]
     Active Substance: CALCIUM\VITAMIN D
  6. BUSIPRONE HCL [Concomitant]
  7. MULTIVITAMIN [Concomitant]
     Active Substance: VITAMINS
  8. LOSARTAN POTASSIUM. [Concomitant]
     Active Substance: LOSARTAN POTASSIUM
  9. PRAVASTATIN SODIUM 10 MG [Suspect]
     Active Substance: PRAVASTATIN SODIUM
     Indication: TRANSIENT ISCHAEMIC ATTACK
     Dosage: ?          QUANTITY:90 TABLET(S);?
     Route: 048
     Dates: start: 20170426, end: 20170610
  10. PRAVASTATIN SODIUM 10 MG [Suspect]
     Active Substance: PRAVASTATIN SODIUM
     Indication: BLOOD CHOLESTEROL INCREASED
     Dosage: ?          QUANTITY:90 TABLET(S);?
     Route: 048
     Dates: start: 20170426, end: 20170610

REACTIONS (8)
  - Oedema [None]
  - Oedema peripheral [None]
  - Vascular insufficiency [None]
  - Nasal congestion [None]
  - Abnormal faeces [None]
  - Arthralgia [None]
  - Insomnia [None]
  - Liver disorder [None]

NARRATIVE: CASE EVENT DATE: 20170525
